FAERS Safety Report 7169882-7 (Version None)
Quarter: 2010Q4

REPORT INFORMATION
  Report Type: 
  Country: None (occurrence: None)
  Receive Date: 20101217
  Receipt Date: 20101214
  Transmission Date: 20110411
  Serious: Yes (Death)
  Sender: FDA-Public Use
  Company Number: PHHY2010BR84960

PATIENT
  Sex: Female

DRUGS (2)
  1. EXELON [Suspect]
     Dosage: 4.6 MG/24 HOURS
     Route: 062
  2. GALVUS [Suspect]
     Dosage: 50 MG, UNK

REACTIONS (1)
  - DEATH [None]
